FAERS Safety Report 7657919 (Version 3)
Quarter: 2012Q4

REPORT INFORMATION
  Report Type: 
  Country: US (occurrence: US)
  Receive Date: 20101105
  Receipt Date: 20120904
  Transmission Date: 20130627
  Serious: Yes (Hospitalization, Other)
  Sender: FDA-Public Use
  Company Number: US-BAYER-201039444NA

PATIENT
  Age: 30 Year
  Sex: Female
  Weight: 78.01 kg

DRUGS (6)
  1. YASMIN [Suspect]
     Indication: PRODUCT USED FOR UNKNOWN INDICATION
     Dates: start: 20071006, end: 20071028
  2. LORAZEPAM [Concomitant]
  3. CIPROFLOXACIN [Concomitant]
  4. MULTI-VITAMIN [Concomitant]
  5. DIAZEPAM [Concomitant]
  6. PEPCID [Concomitant]

REACTIONS (12)
  - Pulmonary embolism [Recovered/Resolved]
  - Cystitis interstitial [None]
  - Pulmonary infarction [None]
  - Convulsion [None]
  - Pleurisy [None]
  - Dyspnoea [Recovered/Resolved]
  - Chest pain [Recovered/Resolved]
  - Hypoaesthesia [Recovered/Resolved]
  - Paraesthesia [Recovered/Resolved]
  - Dizziness [Recovered/Resolved]
  - Depression [None]
  - Anxiety [None]
